FAERS Safety Report 8476180-8 (Version None)
Quarter: 2012Q2

REPORT INFORMATION
  Report Type: 
  Country: None (occurrence: None)
  Receive Date: 20120628
  Receipt Date: 20120111
  Transmission Date: 20120825
  Serious: Yes (Life-Threatening)
  Sender: FDA-Public Use
  Company Number: BE-BAXTER-2011BH029901

PATIENT
  Sex: Male

DRUGS (9)
  1. HYDROCORTISONE ACETATE [Concomitant]
     Route: 065
     Dates: start: 20110809
  2. DIPRIVAN [Concomitant]
     Route: 065
     Dates: start: 20110809
  3. ULTIVA [Concomitant]
     Route: 041
     Dates: start: 20110809
  4. TISSUCOL STIM4 [Suspect]
  5. TARADYL [Concomitant]
     Route: 065
     Dates: start: 20110809
  6. AUGMENTIN '125' [Concomitant]
     Route: 065
     Dates: start: 20110809
  7. SPONGOSTAN [Concomitant]
     Route: 065
     Dates: start: 20110809
  8. TISSUCOL STIM4 [Suspect]
     Route: 065
     Dates: start: 20110809, end: 20110809
  9. NIMBEX [Concomitant]
     Route: 065
     Dates: start: 20110809

REACTIONS (2)
  - SHOCK [None]
  - ANAPHYLACTIC REACTION [None]
